FAERS Safety Report 11645623 (Version 2)
Quarter: 2017Q3

REPORT INFORMATION
  Report Type: Spontaneous
  Country: US (occurrence: US)
  Receive Date: 20151020
  Receipt Date: 20170928
  Transmission Date: 20171127
  Serious: No
  Sender: FDA-Public Use
  Company Number: US-ASTRAZENECA-2015SE98363

PATIENT
  Age: 27039 Day
  Sex: Male
  Weight: 90.7 kg

DRUGS (4)
  1. TUDORZA PRESSAIR [Suspect]
     Active Substance: ACLIDINIUM BROMIDE
     Indication: DYSPNOEA
     Dosage: 400 MCG ONE PUFF TWICE DAILY
     Route: 055
  2. TUDORZA PRESSAIR [Suspect]
     Active Substance: ACLIDINIUM BROMIDE
     Indication: EMPHYSEMA
     Dosage: 400 MCG ONE PUFF TWICE DAILY
     Route: 055
  3. TUDORZA PRESSAIR [Suspect]
     Active Substance: ACLIDINIUM BROMIDE
     Indication: EMPHYSEMA
     Dosage: 400 MCG ONE PUFF TWICE DAILY
     Route: 055
     Dates: start: 20151007
  4. TUDORZA PRESSAIR [Suspect]
     Active Substance: ACLIDINIUM BROMIDE
     Indication: DYSPNOEA
     Dosage: 400 MCG ONE PUFF TWICE DAILY
     Route: 055
     Dates: start: 20151007

REACTIONS (4)
  - Intentional product misuse [Unknown]
  - Product quality issue [Unknown]
  - Drug dose omission [Unknown]
  - Dysgeusia [Unknown]

NARRATIVE: CASE EVENT DATE: 20151007
